FAERS Safety Report 8496311-3 (Version None)
Quarter: 2012Q3

REPORT INFORMATION
  Report Type: 
  Country: None (occurrence: None)
  Receive Date: 20120709
  Receipt Date: 20120629
  Transmission Date: 20120928
  Serious: Yes (Other)
  Sender: FDA-Public Use
  Company Number: US-BAYER-200816408NA

PATIENT
  Age: 51 Year
  Sex: Female
  Weight: 64.091 kg

DRUGS (79)
  1. OPTIMARK [Suspect]
     Indication: NUCLEAR MAGNETIC RESONANCE IMAGING
     Route: 042
  2. MULTIHANCE [Suspect]
     Indication: FISTULOGRAM
  3. LEVOTHROID [Concomitant]
     Dosage: PER MR 24-APR-2007; 0.025 MG, TWO DAILY
  4. ATENOLOL [Concomitant]
     Route: 048
  5. PHOSLO [Concomitant]
     Dosage: 1 TABLET TID W/MEALS
  6. EPOETIN NOS [Concomitant]
  7. PEG-3350 AND ELECTROLYTES [Concomitant]
     Route: 048
  8. MAGNEVIST [Suspect]
     Indication: NUCLEAR MAGNETIC RESONANCE IMAGING
     Dosage: UNK, ONCE
     Dates: start: 20010111, end: 20010111
  9. OPTIMARK [Suspect]
     Indication: VENOGRAM
  10. MULTIHANCE [Suspect]
     Indication: VENOGRAM
  11. LEVOTHROID [Concomitant]
     Dosage: AS OF 27-MAR-2007
     Route: 048
  12. CALCIUM CARBONATE [Concomitant]
     Route: 048
  13. RENAGEL [Concomitant]
     Dosage: 4-5 CAPSULES W/MEALS AND 3-4 CAPSULES W/SNACKS
     Route: 048
  14. EPOGEN [Concomitant]
  15. PROCARDIA XL [Concomitant]
     Route: 048
  16. PRAVACHOL [Concomitant]
     Route: 048
  17. SENSIPAR [Concomitant]
     Route: 048
  18. VITAMIN B12 [Concomitant]
     Dosage: 1,000 MCG/ML
  19. IMODIUM [Concomitant]
  20. CARDIZEM [Concomitant]
  21. MAGNEVIST [Suspect]
     Indication: ARTERIOVENOUS FISTULA OPERATION
     Dates: start: 20061128, end: 20061128
  22. PROHANCE [Suspect]
     Indication: VENOGRAM
  23. PROHANCE [Suspect]
     Indication: FISTULOGRAM
  24. PREDNISONE [Concomitant]
     Dosage: MR OF 29-JUL-2007 TAPER OF PREDNISONE 40MG DAILY X 2 DAYS, THEN 20 MG DAILY X 2 DAYS, THEN OFF
     Dates: start: 20070729, end: 20070801
  25. AMIODARONE HCL [Concomitant]
     Dosage: PER MR 24-APR-2007 AND 15-MAY-2007
     Route: 048
  26. ALLOPURINOL [Concomitant]
     Dosage: MR 03-JUN-1996: QAM
  27. IMMUNE GLOBULIN NOS [Concomitant]
     Route: 042
     Dates: start: 20070613, end: 20070613
  28. BENADRYL [Concomitant]
     Route: 048
     Dates: start: 20070615, end: 20070615
  29. OMEPRAZOLE [Concomitant]
     Route: 048
  30. OMNISCAN [Suspect]
     Indication: NUCLEAR MAGNETIC RESONANCE IMAGING
  31. PROHANCE [Suspect]
     Indication: NUCLEAR MAGNETIC RESONANCE IMAGING
     Route: 042
  32. PROTONIX [Concomitant]
  33. RENAGEL [Concomitant]
     Dosage: MR 29-JUL-2007: SIX TABLETS WITH MEALS, THREE TABLETS WITH SNACKS
  34. PLENDIL [Concomitant]
     Route: 048
  35. IMMUNE GLOBULIN NOS [Concomitant]
     Route: 042
     Dates: start: 20070615, end: 20070615
  36. ACETAMINOPHEN [Concomitant]
     Route: 048
     Dates: start: 20070725, end: 20070725
  37. PRAVASTATIN [Concomitant]
     Route: 048
  38. MAGNEVIST [Suspect]
     Indication: VENOUS PRESSURE INCREASED
     Dosage: UNK, ONCE
     Dates: start: 20041209, end: 20041209
  39. MAGNEVIST [Suspect]
     Indication: DIALYSIS EFFICACY TEST
     Route: 042
     Dates: start: 20060926, end: 20060926
  40. MAGNEVIST [Suspect]
     Indication: DIALYSIS DEVICE INSERTION
  41. OMNISCAN [Suspect]
     Indication: FISTULOGRAM
  42. ATENOLOL [Concomitant]
     Route: 048
  43. COUMADIN [Concomitant]
     Dosage: MON, TUES, WED, FRI, SAT 1/2 TABLET DAILY; MR 29-JUL-2007 1/2 TAB (M/W/THURS/FRI/SAT)
  44. REGLAN [Concomitant]
  45. VICODIN [Concomitant]
  46. NEPHRO-VITE [VITAMINS NOS] [Concomitant]
     Dosage: 1
     Route: 048
  47. IMMUNE GLOBULIN NOS [Concomitant]
     Route: 042
     Dates: start: 20070620, end: 20070620
  48. IMMUNE GLOBULIN NOS [Concomitant]
     Route: 042
     Dates: start: 20070622, end: 20070622
  49. ACETAMINOPHEN [Concomitant]
  50. NITROGLYCERIN [Concomitant]
     Route: 060
  51. TRAMADOL HCL [Concomitant]
  52. OPTIMARK [Suspect]
     Indication: FISTULOGRAM
  53. COUMADIN [Concomitant]
     Dosage: 1 TABLET SUNDAY AND THURSDAY; MR 29-JUL-2007 1 TABLET SUNDAY AND TUESDAY
  54. CALCIUM CARBONATE [Concomitant]
     Dosage: 2 TABLETS DAILY
     Route: 048
  55. SENSIPAR [Concomitant]
     Dates: start: 20060101, end: 20070301
  56. CYCLOSPORINE [Concomitant]
     Dosage: 100 MG Q AM AND 50 MG Q PM
  57. ACETAMINOPHEN [Concomitant]
     Route: 048
     Dates: start: 20070613, end: 20070613
  58. BENADRYL [Concomitant]
     Route: 048
     Dates: start: 20070613, end: 20070613
  59. BENADRYL [Concomitant]
     Route: 048
     Dates: start: 20070622, end: 20070622
  60. CALCITRIOL [Concomitant]
     Route: 048
  61. FOSRENOL [Concomitant]
     Dosage: CHEW
     Route: 048
  62. METOCLOPRAMIDE [Concomitant]
     Route: 048
  63. METOPROLOL TARTRATE [Concomitant]
     Indication: HYPERTENSION
     Dosage: UNK
     Dates: start: 20000101
  64. OMNISCAN [Suspect]
     Indication: VENOGRAM
     Route: 042
  65. MULTIHANCE [Suspect]
     Indication: NUCLEAR MAGNETIC RESONANCE IMAGING
     Route: 042
  66. NIFEDIPINE [Concomitant]
  67. ACETAMINOPHEN [Concomitant]
     Route: 048
     Dates: start: 20070622, end: 20070622
  68. BENADRYL [Concomitant]
     Route: 048
     Dates: start: 20070620, end: 20070620
  69. UREACIN [Concomitant]
     Route: 061
  70. LOPERAMIDE [Concomitant]
     Route: 048
  71. CORTICOSTEROIDS [Concomitant]
  72. COUMADIN [Concomitant]
     Route: 048
     Dates: end: 20070101
  73. PROTONIX [Concomitant]
     Dosage: PER MR 24-APR-2007
     Route: 048
  74. ALLOPURINOL [Concomitant]
     Route: 048
  75. PRILOSEC [Concomitant]
     Route: 048
  76. IMMUNE GLOBULIN NOS [Concomitant]
     Route: 042
     Dates: start: 20070725, end: 20070725
  77. ACETAMINOPHEN [Concomitant]
     Route: 048
     Dates: start: 20070615, end: 20070615
  78. ACETAMINOPHEN [Concomitant]
     Route: 048
     Dates: start: 20070620, end: 20070620
  79. BENADRYL [Concomitant]
     Route: 048
     Dates: start: 20070725, end: 20070725

REACTIONS (30)
  - OEDEMA PERIPHERAL [None]
  - INJURY [None]
  - MOBILITY DECREASED [None]
  - PAIN [None]
  - PAIN IN EXTREMITY [None]
  - ANXIETY [None]
  - EMOTIONAL DISTRESS [None]
  - FIBROSIS [None]
  - SKIN TIGHTNESS [None]
  - SKIN EXFOLIATION [None]
  - DYSSTASIA [None]
  - NEPHROGENIC SYSTEMIC FIBROSIS [None]
  - JOINT RANGE OF MOTION DECREASED [None]
  - SKIN FISSURES [None]
  - SKIN DISCOLOURATION [None]
  - BURNING SENSATION [None]
  - DRY SKIN [None]
  - SKIN HYPERTROPHY [None]
  - SKIN INDURATION [None]
  - SCLERODACTYLIA [None]
  - JOINT STIFFNESS [None]
  - ERYTHEMA [None]
  - DERMATITIS [None]
  - MOTOR DYSFUNCTION [None]
  - SKIN HAEMORRHAGE [None]
  - ACTIVITIES OF DAILY LIVING IMPAIRED [None]
  - INSOMNIA [None]
  - PRURITUS [None]
  - SCAR [None]
  - PERIPHERAL COLDNESS [None]
